FAERS Safety Report 10172644 (Version 1)
Quarter: 2014Q2

REPORT INFORMATION
  Report Type: Report from Study
  Country: US (occurrence: US)
  Receive Date: 20140515
  Receipt Date: 20140515
  Transmission Date: 20141212
  Serious: No
  Sender: FDA-Public Use
  Company Number: US-ABBVIE-13P-163-1178872-00

PATIENT
  Age: 30 Year
  Sex: Male
  Weight: 99.88 kg

DRUGS (1)
  1. GENGRAF [Suspect]
     Indication: PSORIASIS
     Dates: start: 200901

REACTIONS (1)
  - Abdominal pain upper [Not Recovered/Not Resolved]
